FAERS Safety Report 6241660-2 (Version None)
Quarter: 2009Q2

REPORT INFORMATION
  Report Type: 
  Country: None (occurrence: None)
  Receive Date: 20090623
  Receipt Date: 20070201
  Transmission Date: 20091009
  Serious: Yes (Other)
  Sender: FDA-Public Use
  Company Number: PL-ROCHE-637368

PATIENT
  Age: 75 Year
  Sex: Male

DRUGS (4)
  1. CAPECITABINE [Suspect]
     Indication: GALLBLADDER CANCER
     Dosage: FOR SIX CYCLES
     Route: 048
  2. CAPECITABINE [Suspect]
     Dosage: DISCONTINUED AFTER THREE MONTHS
     Route: 048
  3. GEMCITABINE [Suspect]
     Indication: GALLBLADDER CANCER
     Dosage: GIVEN ON DAY ONE AND EIGHT OF EVERY 3 WEEKS, FORM : INFUSION
     Route: 042
  4. GEMCITABINE [Suspect]
     Dosage: DISCONTINUED AFTER THREE MONTHS
     Route: 042

REACTIONS (2)
  - BLOOD TEST ABNORMAL [None]
  - FEMORAL NECK FRACTURE [None]
